FAERS Safety Report 10994796 (Version 1)
Quarter: 2015Q2

REPORT INFORMATION
  Report Type: Spontaneous
  Country: ES (occurrence: ES)
  Receive Date: 20150407
  Receipt Date: 20150407
  Transmission Date: 20150821
  Serious: Yes (Other)
  Sender: FDA-Public Use
  Company Number: ES-BAXTER-2015BAX017571

PATIENT
  Age: 2 Year
  Sex: Male

DRUGS (4)
  1. GENOXAL [Suspect]
     Active Substance: CYCLOPHOSPHAMIDE
     Indication: OFF LABEL USE
  2. GENOXAL [Suspect]
     Active Substance: CYCLOPHOSPHAMIDE
     Indication: NEPHROTIC SYNDROME
     Route: 065
  3. RITUXIMAB [Suspect]
     Active Substance: RITUXIMAB
     Indication: NEPHROTIC SYNDROME
     Route: 042
  4. MYCOPHENOLATE [Suspect]
     Active Substance: MYCOPHENOLIC ACID
     Indication: NEPHROTIC SYNDROME
     Route: 065

REACTIONS (2)
  - No therapeutic response [Not Recovered/Not Resolved]
  - Hypogammaglobulinaemia [Not Recovered/Not Resolved]
